FAERS Safety Report 14913770 (Version 1)
Quarter: 2018Q2

REPORT INFORMATION
  Report Type: Other
  Country: HU (occurrence: HU)
  Receive Date: 20180518
  Receipt Date: 20180518
  Transmission Date: 20180711
  Serious: Yes (Hospitalization)
  Sender: FDA-Public Use
  Company Number: HU-GLENMARK PHARMACEUTICALS-2018GMK035405

PATIENT

DRUGS (5)
  1. CILASTATIN SODIUM, IMIPENEM [Suspect]
     Active Substance: CILASTATIN SODIUM\IMIPENEM
     Indication: SEPTIC SHOCK
     Dosage: UNK
     Route: 065
  2. NEBIVOLOL. [Suspect]
     Active Substance: NEBIVOLOL
     Indication: HYPERTENSION
     Dosage: UNK
     Route: 065
     Dates: end: 201305
  3. CILASTATIN SODIUM, IMIPENEM [Suspect]
     Active Substance: CILASTATIN SODIUM\IMIPENEM
     Indication: NEPHRITIS
     Dosage: 1500 MG, UNK
     Route: 065
     Dates: start: 20130504, end: 201305
  4. FLUCONAZOLE. [Suspect]
     Active Substance: FLUCONAZOLE
     Indication: FUNGAL INFECTION
     Dosage: 400 MG, OD
     Route: 065
     Dates: start: 20130504, end: 201305
  5. VALSARTAN. [Suspect]
     Active Substance: VALSARTAN
     Indication: HYPERTENSION
     Dosage: UNK
     Route: 065
     Dates: end: 201305

REACTIONS (1)
  - Hepatitis fulminant [Recovered/Resolved]

NARRATIVE: CASE EVENT DATE: 201305
